FAERS Safety Report 23473514 (Version 1)
Quarter: 2024Q1

REPORT INFORMATION
  Report Type: Spontaneous
  Country: US (occurrence: US)
  Receive Date: 20240203
  Receipt Date: 20240203
  Transmission Date: 20240409
  Serious: No
  Sender: FDA-Public Use
  Company Number: US-AMGEN-USASP2024022517

PATIENT

DRUGS (1)
  1. AIMOVIG [Suspect]
     Active Substance: ERENUMAB-AOOE
     Indication: Product used for unknown indication
     Dosage: UNK
     Route: 065

REACTIONS (2)
  - Muscle twitching [Unknown]
  - Myalgia [Unknown]
